FAERS Safety Report 8833511 (Version 2)
Quarter: 2012Q4

REPORT INFORMATION
  Report Type: 
  Country: JP (occurrence: JP)
  Receive Date: 20121010
  Receipt Date: 20121026
  Transmission Date: 20130627
  Serious: Yes (Other)
  Sender: FDA-Public Use
  Company Number: JP-ROCHE-1140025

PATIENT
  Age: 33 Year
  Sex: Female

DRUGS (9)
  1. CEFTRIAXONE [Suspect]
     Indication: BACTERIAL INFECTION
     Dosage: Dosage is uncertain.
     Route: 042
  2. TAMIFLU [Suspect]
     Indication: INFLUENZA
     Dosage: Dosage is uncertain.
     Route: 065
  3. FLOMOXEF SODIUM [Suspect]
     Indication: BACTERIAL INFECTION
     Dosage: Dosage is uncertain.
     Route: 065
  4. MEROPENEM [Suspect]
     Indication: BACTERIAL INFECTION
     Dosage: Dosage is uncertain.
     Route: 065
  5. PREDNISOLONE [Concomitant]
     Dosage: dose is uncertain
     Route: 048
  6. PHENYTOIN [Concomitant]
     Dosage: dose is uncertain
     Route: 065
  7. ACICLOVIR [Concomitant]
     Dosage: dose is uncertain
     Route: 065
  8. MEROPENEM [Concomitant]
     Dosage: dose in uncertain
     Route: 065
  9. DEXAMETHASONE [Concomitant]
     Dosage: dose is uncertain
     Route: 065

REACTIONS (5)
  - Encephalitis [Unknown]
  - Erythema [Unknown]
  - Liver disorder [Unknown]
  - Bacterial infection [Unknown]
  - Exposure during pregnancy [Unknown]
